FAERS Safety Report 22189165 (Version 2)
Quarter: 2023Q2

REPORT INFORMATION
  Report Type: Report from Study
  Country: US (occurrence: US)
  Receive Date: 20230410
  Receipt Date: 20230427
  Transmission Date: 20230721
  Serious: Yes (Other)
  Sender: FDA-Public Use
  Company Number: US-ABBVIE-4720223

PATIENT
  Age: 79 Year
  Sex: Female

DRUGS (4)
  1. IMBRUVICA [Suspect]
     Active Substance: IBRUTINIB
     Indication: Waldenstrom^s macroglobulinaemia
     Dosage: FORM STRENGTH 140 MILLIGRAM
     Route: 048
     Dates: start: 20200617
  2. IMBRUVICA [Suspect]
     Active Substance: IBRUTINIB
     Indication: Waldenstrom^s macroglobulinaemia
     Dosage: FORM STRENGTH 140 MILLIGRAM
     Route: 048
     Dates: start: 20200624
  3. IMBRUVICA [Suspect]
     Active Substance: IBRUTINIB
     Indication: Waldenstrom^s macroglobulinaemia
     Dosage: FORM STRENGTH 140 MILLIGRAM
     Route: 048
  4. AMLODIPINE [Concomitant]
     Active Substance: AMLODIPINE BESYLATE
     Indication: Product used for unknown indication
     Dosage: FIVE MILLIGRAM

REACTIONS (9)
  - Knee arthroplasty [Unknown]
  - Depression [Unknown]
  - Joint swelling [Unknown]
  - Weight decreased [Unknown]
  - Musculoskeletal discomfort [Unknown]
  - Anxiety [Unknown]
  - Fluid intake reduced [Unknown]
  - Liver disorder [Unknown]
  - Renal disorder [Unknown]

NARRATIVE: CASE EVENT DATE: 20230213
